FAERS Safety Report 8784223 (Version 1)
Quarter: 2012Q4

REPORT INFORMATION
  Report Type: Spontaneous
  Country: US (occurrence: None)
  Receive Date: 20120905
  Receipt Date: 20120905
  Transmission Date: 20130627
  Serious: Yes (Other)
  Sender: FDA-Public Use
  Company Number: None

PATIENT
  Age: 27 Year
  Sex: Male
  Weight: 77.11 kg

DRUGS (2)
  1. CREST PRO-HEALTH COMPLETE (FRESH MINT) [Suspect]
     Route: 004
     Dates: start: 20120901, end: 20120901
  2. CREST PRO-HEALTH [Concomitant]

REACTIONS (1)
  - Ageusia [None]
